FAERS Safety Report 6306047-2 (Version None)
Quarter: 2009Q3

REPORT INFORMATION
  Report Type: 
  Country: None (occurrence: None)
  Receive Date: 20090812
  Receipt Date: 20090803
  Transmission Date: 20100115
  Serious: Yes (Congenital Anomaly)
  Sender: FDA-Public Use
  Company Number: BE-BAYER-200926284GPV

PATIENT
  Sex: Male

DRUGS (2)
  1. MIRENA [Suspect]
     Indication: DRUG USE FOR UNKNOWN INDICATION
     Route: 064
  2. FOLIC ACID [Concomitant]

REACTIONS (2)
  - HYDRONEPHROSIS [None]
  - SPINA BIFIDA [None]
